FAERS Safety Report 16311380 (Version 1)
Quarter: 2019Q2

REPORT INFORMATION
  Report Type: Spontaneous
  Country: US (occurrence: US)
  Receive Date: 20190514
  Receipt Date: 20190514
  Transmission Date: 20190711
  Serious: Yes (Hospitalization, Other)
  Sender: FDA-Public Use
  Company Number: US-BAUSCH-BL-2019-013907

PATIENT
  Age: 77 Year
  Sex: Female

DRUGS (2)
  1. LORAZEPAM. [Suspect]
     Active Substance: LORAZEPAM
     Dosage: RESTARTED ON LORAZEPAM WITH TOTAL RESOLUTION OF THE SYMPTOMS
     Route: 065
  2. LORAZEPAM. [Suspect]
     Active Substance: LORAZEPAM
     Indication: PRODUCT USED FOR UNKNOWN INDICATION
     Dosage: LONG-TERM USE, AT NIGHT TIME
     Route: 065

REACTIONS (4)
  - Withdrawal syndrome [Recovered/Resolved]
  - Major depression [Recovered/Resolved]
  - Delusion [Recovered/Resolved]
  - Catatonia [Recovered/Resolved]
